FAERS Safety Report 5126299-4 (Version None)
Quarter: 2006Q3

REPORT INFORMATION
  Report Type: 
  Country: None (occurrence: None)
  Receive Date: 20060825
  Receipt Date: 20050929
  Transmission Date: 20061208
  Serious: Yes (Death)
  Sender: FDA-Public Use
  Company Number: 05P-163-0312395-00

PATIENT
  Age: 91 Year
  Sex: Female

DRUGS (1)
  1. SYNTHROID [Suspect]
     Dosage: 25 MCG, 2 IN 1 D

REACTIONS (1)
  - DEATH [None]
